FAERS Safety Report 20612480 (Version 1)
Quarter: 2022Q1

REPORT INFORMATION
  Report Type: Spontaneous
  Country: US (occurrence: None)
  Receive Date: 20220318
  Receipt Date: 20220318
  Transmission Date: 20220424
  Serious: Yes (Other)
  Sender: FDA-Public Use
  Company Number: None

PATIENT
  Age: 66 Year
  Sex: Female

DRUGS (8)
  1. ESBRIET [Suspect]
     Active Substance: PIRFENIDONE
     Indication: Pulmonary fibrosis
     Dosage: FREQUENCY : 3 TIMES A DAY;?
     Route: 048
     Dates: start: 20211101
  2. ATORVASTATIN [Concomitant]
     Active Substance: ATORVASTATIN
  3. GABAPENTIN [Concomitant]
     Active Substance: GABAPENTIN
  4. SYMBICORT [Concomitant]
     Active Substance: BUDESONIDE\FORMOTEROL FUMARATE DIHYDRATE
  5. METOPROLOL [Concomitant]
     Active Substance: METOPROLOL
  6. TRAZODONE [Concomitant]
     Active Substance: TRAZODONE HYDROCHLORIDE
  7. BUPROPION [Concomitant]
     Active Substance: BUPROPION
  8. ALBUTEROL [Concomitant]
     Active Substance: ALBUTEROL

REACTIONS (6)
  - Pruritus [None]
  - Rash [None]
  - Erythema [None]
  - Pharyngeal erythema [None]
  - Diarrhoea [None]
  - Weight decreased [None]

NARRATIVE: CASE EVENT DATE: 20220318
